FAERS Safety Report 4682481-1 (Version None)
Quarter: 2005Q2

REPORT INFORMATION
  Report Type: 
  Country: None (occurrence: None)
  Receive Date: 20050606
  Receipt Date: 20050527
  Transmission Date: 20051028
  Serious: Yes (Other)
  Sender: FDA-Public Use
  Company Number: US-ROCHE-406247

PATIENT
  Age: 71 Year
  Sex: Female
  Weight: 69.4 kg

DRUGS (1)
  1. XENICAL [Suspect]
     Route: 048
     Dates: start: 20040615, end: 20040615

REACTIONS (2)
  - CORONARY ARTERY OCCLUSION [None]
  - DYSPEPSIA [None]
